FAERS Safety Report 7099112-6 (Version None)
Quarter: 2010Q4

REPORT INFORMATION
  Report Type: 
  Country: None (occurrence: None)
  Receive Date: 20101112
  Receipt Date: 20101108
  Transmission Date: 20110411
  Serious: Yes (Other)
  Sender: FDA-Public Use
  Company Number: A0891925A

PATIENT
  Sex: Female

DRUGS (1)
  1. VALTREX [Suspect]
     Route: 065

REACTIONS (5)
  - CONFUSIONAL STATE [None]
  - DYSARTHRIA [None]
  - HALLUCINATION [None]
  - MENTAL STATUS CHANGES [None]
  - MOOD ALTERED [None]
